FAERS Safety Report 10664624 (Version 1)
Quarter: 2014Q4

REPORT INFORMATION
  Report Type: Report from Study
  Country: CH (occurrence: CH)
  Receive Date: 20141219
  Receipt Date: 20141219
  Transmission Date: 20150529
  Serious: Yes (Death, Other)
  Sender: FDA-Public Use
  Company Number: CH-MYLANLABS-2014M1014914

PATIENT

DRUGS (2)
  1. CITALOPRAM [Suspect]
     Active Substance: CITALOPRAM HYDROBROMIDE
     Route: 065
  2. TORASEMIDE [Suspect]
     Active Substance: TORSEMIDE
     Route: 065

REACTIONS (3)
  - Parotitis [Fatal]
  - Dry mouth [Unknown]
  - Bacterial infection [Fatal]
